FAERS Safety Report 8954609 (Version 1)
Quarter: 2012Q4

REPORT INFORMATION
  Report Type: 
  Country: US (occurrence: US)
  Receive Date: 20121209
  Receipt Date: 20121209
  Transmission Date: 20130627
  Serious: No
  Sender: FDA-Public Use
  Company Number: US-009507513-1212USA002907

PATIENT
  Sex: Female

DRUGS (2)
  1. LOTRIMIN AF [Suspect]
     Indication: ONYCHOMYCOSIS
     Route: 061
  2. LOTRIMIN AF [Suspect]
     Indication: MEDICAL OBSERVATION

REACTIONS (2)
  - Inappropriate schedule of drug administration [Unknown]
  - Off label use [Unknown]
